FAERS Safety Report 5955861-1 (Version None)
Quarter: 2008Q4

REPORT INFORMATION
  Report Type: 
  Country: None (occurrence: None)
  Receive Date: 20081117
  Receipt Date: 20081103
  Transmission Date: 20090506
  Serious: Yes (Other)
  Sender: FDA-Public Use
  Company Number: TH-GENENTECH-268670

PATIENT
  Age: 55 Year

DRUGS (2)
  1. BEVACIZUMAB [Suspect]
     Indication: GLAUCOMA
     Dosage: 1.25 MG, UNK
     Route: 031
  2. BEVACIZUMAB [Suspect]
     Indication: VITREOUS HAEMORRHAGE

REACTIONS (3)
  - HYPHAEMA [None]
  - INTRAOCULAR PRESSURE INCREASED [None]
  - VITREOUS HAEMORRHAGE [None]
